FAERS Safety Report 4423818-8 (Version None)
Quarter: 2004Q3

REPORT INFORMATION
  Report Type: 
  Country: None (occurrence: None)
  Receive Date: 20040714
  Receipt Date: 20040323
  Transmission Date: 20050211
  Serious: Yes (Other)
  Sender: FDA-Public Use
  Company Number: HQWYE167426MAR04

PATIENT
  Age: 72 Year
  Sex: Male
  Weight: 72.64 kg

DRUGS (5)
  1. ALAVERT [Suspect]
     Indication: HYPERSENSITIVITY
     Dosage: 1 TABLET 1X PER DAY, ORAL
     Route: 048
     Dates: start: 20030120
  2. DILTIAZEM (DILITAZEM) [Concomitant]
  3. WARFARIN SODIUM [Concomitant]
  4. LOVASTATIN [Concomitant]
  5. TOPROL-XL [Concomitant]

REACTIONS (2)
  - CONDITION AGGRAVATED [None]
  - TINNITUS [None]
